FAERS Safety Report 9638671 (Version 1)
Quarter: 2013Q4

REPORT INFORMATION
  Report Type: Spontaneous
  Country: US (occurrence: US)
  Receive Date: 20131022
  Receipt Date: 20131022
  Transmission Date: 20140711
  Serious: No
  Sender: FDA-Public Use
  Company Number: US-BRISTOL-MYERS SQUIBB COMPANY-19353325

PATIENT
  Age: 80 Year
  Sex: Male

DRUGS (20)
  1. ELIQUIS [Suspect]
     Dates: start: 20130801
  2. LORAZEPAM [Concomitant]
  3. LOSARTAN [Concomitant]
  4. AVODART [Concomitant]
  5. PLAQUENIL [Concomitant]
  6. VESICARE [Concomitant]
  7. POTASSIUM [Concomitant]
  8. HYTRIN [Concomitant]
  9. PROTONIX [Concomitant]
  10. ZOCOR [Concomitant]
  11. NITROGLYCERIN [Concomitant]
  12. TOPROL [Concomitant]
  13. TOPROL XL [Concomitant]
  14. ARICEPT [Concomitant]
  15. TRAZODONE HCL [Concomitant]
  16. LEFLUNOMIDE [Concomitant]
  17. LANTUS [Concomitant]
     Dates: start: 20130903
  18. SPIRIVA [Concomitant]
     Route: 055
  19. ALLEGRA [Concomitant]
  20. NASONEX [Concomitant]

REACTIONS (2)
  - Rash [Unknown]
  - Pruritus [Unknown]
